FAERS Safety Report 10080349 (Version 2)
Quarter: 2014Q2

REPORT INFORMATION
  Report Type: Spontaneous
  Country: JP (occurrence: JP)
  Receive Date: 20140415
  Receipt Date: 20140606
  Transmission Date: 20141212
  Serious: Yes (Hospitalization)
  Sender: FDA-Public Use
  Company Number: JP-JNJFOC-20140406032

PATIENT
  Age: 69 Year
  Sex: Male
  Weight: 51 kg

DRUGS (15)
  1. FLORID [Suspect]
     Route: 049
  2. FLORID [Suspect]
     Indication: ORAL CANDIDIASIS
     Dosage: 15 GRAM/DAY
     Route: 049
     Dates: start: 20140311, end: 20140317
  3. WARFARIN [Interacting]
     Indication: ATRIAL FIBRILLATION
     Route: 048
  4. WARFARIN [Interacting]
     Indication: ATRIAL FIBRILLATION
     Route: 048
  5. ACINON [Concomitant]
     Indication: PRODUCT USED FOR UNKNOWN INDICATION
     Route: 048
  6. ACINON [Concomitant]
     Indication: PRODUCT USED FOR UNKNOWN INDICATION
     Route: 048
  7. TRANEXAMIC ACID [Concomitant]
     Indication: PRODUCT USED FOR UNKNOWN INDICATION
     Route: 048
  8. TRANEXAMIC ACID [Concomitant]
     Indication: PRODUCT USED FOR UNKNOWN INDICATION
     Route: 048
  9. CARBAZOCHROME SODIUM SULFONATE [Concomitant]
     Indication: PRODUCT USED FOR UNKNOWN INDICATION
     Route: 048
  10. CARBAZOCHROME SODIUM SULFONATE [Concomitant]
     Indication: PRODUCT USED FOR UNKNOWN INDICATION
     Route: 048
  11. BEPRIDIL HYDROCHLORIDE MONOHYDRATE [Concomitant]
     Indication: PRODUCT USED FOR UNKNOWN INDICATION
     Route: 048
  12. BEPRIDIL HYDROCHLORIDE MONOHYDRATE [Concomitant]
     Indication: PRODUCT USED FOR UNKNOWN INDICATION
     Route: 048
  13. PARIET [Concomitant]
     Indication: GASTRIC ULCER
     Route: 048
  14. MOBIC [Concomitant]
     Indication: INTERVERTEBRAL DISC PROTRUSION
     Route: 048
     Dates: start: 20140331
  15. TERNELIN [Concomitant]
     Indication: INTERVERTEBRAL DISC PROTRUSION
     Route: 048
     Dates: start: 20140331

REACTIONS (6)
  - Hypotension [Recovered/Resolved]
  - Upper gastrointestinal haemorrhage [Recovered/Resolved]
  - Loss of consciousness [Unknown]
  - Drug interaction [Recovering/Resolving]
  - Faeces discoloured [Unknown]
  - International normalised ratio increased [Recovering/Resolving]
